FAERS Safety Report 19310870 (Version 1)
Quarter: 2021Q2

REPORT INFORMATION
  Report Type: Spontaneous
  Country: US (occurrence: US)
  Receive Date: 20210526
  Receipt Date: 20210526
  Transmission Date: 20210717
  Serious: Yes (Disabling, Other)
  Sender: FDA-Public Use
  Company Number: US-PURDUE PHARMA-USA-2021-0261324

PATIENT
  Sex: Female

DRUGS (3)
  1. SENOKOT?S [Suspect]
     Active Substance: DOCUSATE SODIUM\SENNOSIDES
     Dosage: 6 TABLET, DAILY
     Route: 048
  2. SENOKOT?S [Suspect]
     Active Substance: DOCUSATE SODIUM\SENNOSIDES
     Indication: PRODUCT USED FOR UNKNOWN INDICATION
     Dosage: 6 TABLET, DAILY
     Route: 048
     Dates: start: 2009
  3. SENOKOT?S [Suspect]
     Active Substance: DOCUSATE SODIUM\SENNOSIDES
     Dosage: 6 TABLET, DAILY
     Route: 048

REACTIONS (2)
  - Muscle spasms [Unknown]
  - Disability [Not Recovered/Not Resolved]
